FAERS Safety Report 18911654 (Version 1)
Quarter: 2021Q1

REPORT INFORMATION
  Report Type: Spontaneous
  Country: CN (occurrence: CN)
  Receive Date: 20210218
  Receipt Date: 20210218
  Transmission Date: 20210420
  Serious: Yes (Life-Threatening, Hospitalization)
  Sender: FDA-Public Use
  Company Number: CN-PFIZER INC-2021132076

PATIENT
  Age: 77 Year
  Sex: Male
  Weight: 65 kg

DRUGS (7)
  1. MICAFUNGIN SODIUM [Suspect]
     Active Substance: MICAFUNGIN SODIUM
     Indication: INFECTION
     Dosage: 150 MG, 1X/DAY
     Route: 041
     Dates: start: 20201231, end: 20210106
  2. TIGECYCLINE. [Suspect]
     Active Substance: TIGECYCLINE
     Indication: INFECTION
     Dosage: 50 MG, 2X/DAY
     Route: 041
     Dates: start: 20201228, end: 20210106
  3. SODIUM CHLORIDE 0.9% [Concomitant]
     Active Substance: SODIUM CHLORIDE
     Indication: VEHICLE SOLUTION USE
     Dosage: 100 ML, 1X/DAY
     Route: 041
     Dates: start: 20201231, end: 20210106
  4. LINEZOLID. [Suspect]
     Active Substance: LINEZOLID
     Indication: CHRONIC OBSTRUCTIVE PULMONARY DISEASE
  5. LINEZOLID. [Suspect]
     Active Substance: LINEZOLID
     Indication: INFECTION
     Dosage: 0.6 G, 2X/DAY
     Route: 041
     Dates: start: 20201229, end: 20210104
  6. SODIUM CHLORIDE 0.9% [Suspect]
     Active Substance: SODIUM CHLORIDE
     Indication: VEHICLE SOLUTION USE
     Dosage: 100 ML, 2X/DAY
     Route: 041
     Dates: start: 20201228, end: 20210106
  7. TIGECYCLINE. [Suspect]
     Active Substance: TIGECYCLINE
     Indication: CHRONIC OBSTRUCTIVE PULMONARY DISEASE

REACTIONS (3)
  - Restlessness [Recovered/Resolved]
  - Tachycardia [Recovered/Resolved]
  - Agitation [Recovered/Resolved]

NARRATIVE: CASE EVENT DATE: 20210105
